FAERS Safety Report 7587754-0 (Version None)
Quarter: 2011Q3

REPORT INFORMATION
  Report Type: 
  Country: None (occurrence: None)
  Receive Date: 20110705
  Receipt Date: 20110629
  Transmission Date: 20111222
  Serious: Yes (Other)
  Sender: FDA-Public Use
  Company Number: US-BRISTOL-MYERS SQUIBB COMPANY-15863657

PATIENT
  Age: 36 Year
  Sex: Male
  Weight: 154 kg

DRUGS (7)
  1. LASIX [Concomitant]
  2. PHENERGAN HCL [Concomitant]
  3. OXYCODONE HCL [Concomitant]
  4. VITAMIN D [Concomitant]
  5. SPRYCEL [Suspect]
     Indication: CHRONIC MYELOID LEUKAEMIA
     Dates: start: 20110101
  6. NEURONTIN [Concomitant]
  7. METFORMIN HCL [Concomitant]
     Indication: DIABETES MELLITUS

REACTIONS (18)
  - VOMITING [None]
  - ASTHENIA [None]
  - WEIGHT DECREASED [None]
  - DECREASED APPETITE [None]
  - ANXIETY [None]
  - MEMORY IMPAIRMENT [None]
  - PRESYNCOPE [None]
  - NAUSEA [None]
  - DEPRESSION [None]
  - HEPATOMEGALY [None]
  - TREMOR [None]
  - SPLENOMEGALY [None]
  - CHILLS [None]
  - DISTURBANCE IN ATTENTION [None]
  - SUNBURN [None]
  - HYPERHIDROSIS [None]
  - INSOMNIA [None]
  - PANIC ATTACK [None]
